FAERS Safety Report 4389533-4 (Version None)
Quarter: 2004Q2

REPORT INFORMATION
  Report Type: 
  Country: None (occurrence: None)
  Receive Date: 20040628
  Receipt Date: 20040614
  Transmission Date: 20050107
  Serious: No
  Sender: FDA-Public Use
  Company Number: 04P-167-0263855-00

PATIENT
  Age: 55 Year
  Sex: Female

DRUGS (7)
  1. HUMIRA [Suspect]
     Dosage: 40 MG, SUBCUTANEOUS
     Route: 058
  2. CONJUGATED ESTROGEN [Suspect]
  3. FLUOXETINE [Suspect]
  4. METHOTREXATE [Suspect]
  5. ROFECOXIB [Suspect]
  6. PARAMOL-118 [Suspect]
  7. AMOXICILLIN AND CLAVULANATE POTASSIUM [Suspect]

REACTIONS (1)
  - RETINAL HAEMORRHAGE [None]
